FAERS Safety Report 22524524 (Version 1)
Quarter: 2023Q2

REPORT INFORMATION
  Report Type: Spontaneous
  Country: KR (occurrence: KR)
  Receive Date: 20230606
  Receipt Date: 20230606
  Transmission Date: 20230721
  Serious: Yes (Other)
  Sender: FDA-Public Use
  Company Number: KR-ORGANON-O2306KOR000174

PATIENT
  Age: 44 Year
  Sex: Male

DRUGS (12)
  1. COZAAR [Suspect]
     Active Substance: LOSARTAN POTASSIUM
     Indication: Hypertension
     Dosage: 100 MILLIGRAM, QD
     Dates: start: 20180705
  2. CILOSTAZOL [Suspect]
     Active Substance: CILOSTAZOL
     Indication: Basal ganglia infarction
     Dosage: 100 MILLIGRAM, QD
     Dates: start: 20180706
  3. ASPIRIN [Concomitant]
     Active Substance: ASPIRIN
     Indication: Cerebral infarction
     Dosage: 100 MILLIGRAM, QD
     Dates: start: 20180608
  4. ESOMEPRAZOLE MAGNESIUM [Concomitant]
     Active Substance: ESOMEPRAZOLE MAGNESIUM
     Indication: Gastric ulcer
     Dosage: 20 MILLIGRAM, QD
     Dates: start: 20180608
  5. ALFACALCIDOL [Concomitant]
     Active Substance: ALFACALCIDOL
     Indication: Vitamin supplementation
     Dosage: 0.5 MICROGRAM, QD
     Dates: start: 20180608
  6. CARBAMAZEPINE [Concomitant]
     Active Substance: CARBAMAZEPINE
     Indication: Tic
     Dosage: 200 MILLIGRAM, QD
     Dates: start: 1984
  7. DIAZEPAM [Concomitant]
     Active Substance: DIAZEPAM
     Indication: Tic
     Dosage: 2 MILLIGRAM, QD
     Dates: start: 1984
  8. CLONAZEPAM [Concomitant]
     Active Substance: CLONAZEPAM
     Indication: Tic
     Dosage: 0.5 MILLIGRAM, QD
     Dates: start: 20180622
  9. OLANZAPINE [Concomitant]
     Active Substance: OLANZAPINE
     Indication: Tic
     Dosage: 10 MILLIGRAM, QD
     Dates: start: 20180612
  10. RISPERIDONE [Concomitant]
     Active Substance: RISPERIDONE
     Indication: Neurosis
     Dosage: 100 MILLIGRAM, QD
     Dates: start: 20180702
  11. QUETIAPINE FUMARATE [Concomitant]
     Active Substance: QUETIAPINE FUMARATE
     Indication: Tic
     Dosage: 100 MILLIGRAM, QD
     Dates: start: 20180612
  12. PROPRANOLOL HYDROCHLORIDE [Concomitant]
     Active Substance: PROPRANOLOL HYDROCHLORIDE
     Indication: Tic
     Dosage: 40 MILLIGRAM, QD
     Dates: start: 20180622

REACTIONS (2)
  - Dysarthria [Recovered/Resolved]
  - Muscular weakness [Recovering/Resolving]

NARRATIVE: CASE EVENT DATE: 20181114
